FAERS Safety Report 18121755 (Version 3)
Quarter: 2021Q2

REPORT INFORMATION
  Report Type: Spontaneous
  Country: AR (occurrence: AR)
  Receive Date: 20200807
  Receipt Date: 20210629
  Transmission Date: 20210717
  Serious: Yes (Hospitalization, Other)
  Sender: FDA-Public Use
  Company Number: AR-AMGEN-ARGSP2020127809

PATIENT
  Age: 48 Year
  Sex: Male

DRUGS (1)
  1. ENBREL [Suspect]
     Active Substance: ETANERCEPT
     Indication: RHEUMATOID ARTHRITIS
     Dosage: 50 MG, WEEKLY
     Route: 065
     Dates: start: 20170524

REACTIONS (3)
  - Hepatitis toxic [Not Recovered/Not Resolved]
  - Pain [Unknown]
  - Tuberculosis [Not Recovered/Not Resolved]

NARRATIVE: CASE EVENT DATE: 2020
